FAERS Safety Report 13662444 (Version 1)
Quarter: 2017Q2

REPORT INFORMATION
  Report Type: Spontaneous
  Country: US (occurrence: US)
  Receive Date: 20170617
  Receipt Date: 20170617
  Transmission Date: 20170830
  Serious: Yes (Other)
  Sender: FDA-Public Use
  Company Number: US-TORRENT-00003112

PATIENT
  Age: 88 Year
  Sex: Female

DRUGS (1)
  1. MINOCYCLINE [Suspect]
     Active Substance: MINOCYCLINE\MINOCYCLINE HYDROCHLORIDE

REACTIONS (3)
  - Conjunctival pigmentation [Unknown]
  - Scleral pigmentation [Unknown]
  - Skin hyperpigmentation [Unknown]
